FAERS Safety Report 5673354-6 (Version None)
Quarter: 2008Q2

REPORT INFORMATION
  Report Type: 
  Country: None (occurrence: None)
  Receive Date: 20080219
  Receipt Date: 20071030
  Transmission Date: 20081010
  Serious: No
  Sender: FDA-Public Use
  Company Number: TPA2007A02232

PATIENT
  Age: 27 Year
  Sex: Male
  Weight: 73.4827 kg

DRUGS (4)
  1. ROZEREM [Suspect]
     Indication: INSOMNIA
     Dosage: 8 MG, HS, PER ORAL
     Route: 048
     Dates: start: 20071025
  2. ZOLOFT [Concomitant]
  3. CLONAZEPAM [Concomitant]
  4. PROTONIX [Concomitant]

REACTIONS (1)
  - MIDDLE INSOMNIA [None]
